FAERS Safety Report 25194121 (Version 3)
Quarter: 2025Q3

REPORT INFORMATION
  Report Type: Spontaneous
  Country: US (occurrence: US)
  Receive Date: 20250414
  Receipt Date: 20250717
  Transmission Date: 20251020
  Serious: Yes (Other)
  Sender: SANOFI AVENTIS
  Company Number: US-SA-2025SA105201

PATIENT
  Age: 77 Year
  Sex: Female

DRUGS (1)
  1. DUPIXENT [Suspect]
     Active Substance: DUPILUMAB
     Indication: Chronic obstructive pulmonary disease
     Dosage: 300 MG, QOW
     Route: 058
     Dates: start: 20250318

REACTIONS (7)
  - Choking [Not Recovered/Not Resolved]
  - Cough [Unknown]
  - Productive cough [Unknown]
  - Product dose omission in error [Unknown]
  - Haemoptysis [Not Recovered/Not Resolved]
  - Energy increased [Not Recovered/Not Resolved]
  - Eyelid margin crusting [Unknown]

NARRATIVE: CASE EVENT DATE: 20250101
